FAERS Safety Report 8607030 (Version 3)
Quarter: 2012Q4

REPORT INFORMATION
  Report Type: Report from Study
  Country: CH (occurrence: IT)
  Receive Date: 20120611
  Receipt Date: 20120910
  Transmission Date: 20130627
  Serious: Yes (Death, Life-Threatening, Hospitalization)
  Sender: FDA-Public Use
  Company Number: IT-BRISTOL-MYERS SQUIBB COMPANY-16665861

PATIENT
  Age: 65 Year
  Sex: Male
  Weight: 58 kg

DRUGS (3)
  1. CETUXIMAB [Suspect]
     Indication: NON-SMALL CELL LUNG CANCER
     Dosage: Strenth:5mg/ml,No of inf:5
     Route: 042
     Dates: start: 20120416, end: 20120521
  2. CISPLATIN FOR INJ [Suspect]
     Indication: NON-SMALL CELL LUNG CANCER
     Dosage: No of inf:2
     Route: 042
     Dates: start: 20120416, end: 20120514
  3. GEMCITABINE [Suspect]
     Indication: NON-SMALL CELL LUNG CANCER
     Dosage: Day 1 and day 8 of each 3 week cycle,No of inf:4
     Route: 042
     Dates: start: 20110416, end: 20110521

REACTIONS (3)
  - Shock [Fatal]
  - Hypotension [Not Recovered/Not Resolved]
  - Fatigue [Not Recovered/Not Resolved]
